FAERS Safety Report 24766346 (Version 3)
Quarter: 2025Q2

REPORT INFORMATION
  Report Type: Spontaneous
  Country: FR (occurrence: FR)
  Receive Date: 20241223
  Receipt Date: 20250403
  Transmission Date: 20250716
  Serious: Yes (Life-Threatening, Hospitalization)
  Sender: PFIZER
  Company Number: FR-DEAQVIDAP-20240119

PATIENT
  Age: 65 Year
  Sex: Male
  Weight: 99 kg

DRUGS (14)
  1. DOCETAXEL [Suspect]
     Active Substance: DOCETAXEL
     Indication: Hormone-refractory prostate cancer
     Dosage: 75 MG/M2, 1X/DAY (3 WEEKS)
     Route: 042
     Dates: start: 20240906, end: 20240906
  2. DOCETAXEL [Suspect]
     Active Substance: DOCETAXEL
     Dosage: 75 MG/M2, 1X/DAY (3 WEEKS)
     Route: 042
     Dates: start: 20241115, end: 20241115
  3. DOCETAXEL [Suspect]
     Active Substance: DOCETAXEL
     Dosage: 75 MG/M2, 1X/DAY (3 WEEKS)
     Route: 042
     Dates: start: 20250124
  4. LORIGERLIMAB [Suspect]
     Active Substance: LORIGERLIMAB
     Indication: Hormone-refractory prostate cancer
     Dosage: 6 MG/KG, 1X/DAY (EVERY 3 WEEKS)
     Route: 042
     Dates: start: 20240906, end: 20240906
  5. PREDNISONE [Suspect]
     Active Substance: PREDNISONE
     Indication: Hormone-refractory prostate cancer
     Dosage: 5 MG, 1X/DAY
     Route: 048
     Dates: start: 20240906, end: 20241203
  6. PREDNISONE [Suspect]
     Active Substance: PREDNISONE
     Dosage: 5 MG, 1X/DAY
     Route: 048
     Dates: start: 20250124
  7. LEVOTHYROXINE [Concomitant]
     Active Substance: LEVOTHYROXINE
  8. ALBUTEROL [Concomitant]
     Active Substance: ALBUTEROL
  9. FILGRASTIM [Concomitant]
     Active Substance: FILGRASTIM
     Dates: start: 20240911
  10. ELIQUIS [Concomitant]
     Active Substance: APIXABAN
  11. EXFORGE [Concomitant]
     Active Substance: AMLODIPINE BESYLATE\VALSARTAN
  12. FLECAINIDE [Concomitant]
     Active Substance: FLECAINIDE
  13. ROSUVASTATIN [Concomitant]
     Active Substance: ROSUVASTATIN
  14. URAPIDIL [Concomitant]
     Active Substance: URAPIDIL

REACTIONS (1)
  - Oesophagitis [Recovered/Resolved]

NARRATIVE: CASE EVENT DATE: 20241203
